FAERS Safety Report 7403151-2 (Version None)
Quarter: 2011Q2

REPORT INFORMATION
  Report Type: 
  Country: None (occurrence: None)
  Receive Date: 20110408
  Receipt Date: 20110404
  Transmission Date: 20111010
  Serious: Yes (Other)
  Sender: FDA-Public Use
  Company Number: US-PFIZER INC-2008067684

PATIENT
  Sex: Female
  Weight: 156 kg

DRUGS (17)
  1. METOPROLOL [Concomitant]
     Indication: HYPERTENSION
     Dosage: 50 MG, DAILY
  2. ENALAPRIL [Concomitant]
     Indication: HYPERTENSION
     Dosage: 50 MG, 1X/DAY
     Route: 048
  3. EFFEXOR [Concomitant]
     Dosage: 150 MG, UNK
     Route: 048
  4. METHADONE [Concomitant]
     Indication: PAIN
     Dosage: UNK, EVERY EIGHT HOURS
  5. DIOVAN HCT [Concomitant]
     Dosage: 160/12.5 MG
     Route: 048
  6. XANAX [Concomitant]
     Dosage: UNK
  7. TOPROL-XL [Concomitant]
     Dosage: 12.5 MG, 1X/DAY
     Route: 048
  8. ZANAFLEX [Concomitant]
     Dosage: 4 MG, UNK
     Route: 048
  9. DARVOCET [Concomitant]
     Indication: PAIN
     Dosage: 500 MG, 2X/DAY
     Route: 048
  10. ENALAPRIL MALEATE AND HYDROCHLOROTHIAZIDE [Concomitant]
     Indication: HYPERTENSION
     Dosage: 5/12.5 MG, DAILY
  11. TOPROL-XL [Concomitant]
     Indication: HYPERTENSION
     Route: 048
  12. CHOLESTYRAMINE RESIN [Concomitant]
     Dosage: UNK
  13. NEURONTIN [Suspect]
     Indication: NEUROPATHY PERIPHERAL
     Dosage: 600 MG, 3X/DAY
     Route: 048
     Dates: start: 19950101
  14. LYRICA [Suspect]
     Dosage: 100 MG, 2X/DAY
     Route: 048
  15. OXYCODONE [Concomitant]
     Indication: PAIN
     Dosage: UNK, AS NEEDED
  16. LYRICA [Suspect]
     Indication: FIBROMYALGIA
     Dosage: 75 MG, 1X/DAY
     Route: 048
     Dates: start: 20080401
  17. BENTYL [Concomitant]
     Dosage: UNK
     Route: 048

REACTIONS (13)
  - MUSCULAR WEAKNESS [None]
  - ARTHRALGIA [None]
  - VISION BLURRED [None]
  - WEIGHT INCREASED [None]
  - HYPERSOMNIA [None]
  - PAIN IN EXTREMITY [None]
  - FIBROMYALGIA [None]
  - LYMPHOEDEMA [None]
  - NECK PAIN [None]
  - PAIN [None]
  - WEIGHT DECREASED [None]
  - FATIGUE [None]
  - CHEST PAIN [None]
